FAERS Safety Report 4793998-3 (Version None)
Quarter: 2005Q4

REPORT INFORMATION
  Report Type: 
  Country: None (occurrence: None)
  Receive Date: 20051006
  Receipt Date: 20050923
  Transmission Date: 20060501
  Serious: Yes (Hospitalization)
  Sender: FDA-Public Use
  Company Number: 200509IM000540

PATIENT
  Age: 55 Year
  Sex: Male
  Weight: 100.2449 kg

DRUGS (1)
  1. INFERGEN [Suspect]
     Indication: HEPATITIS C
     Dosage: 15 UG, SUBCUTANEOUS
     Route: 058
     Dates: start: 20050401

REACTIONS (2)
  - INJECTION SITE ABSCESS [None]
  - STAPHYLOCOCCAL ABSCESS [None]
